FAERS Safety Report 11363712 (Version 2)
Quarter: 2015Q3

REPORT INFORMATION
  Report Type: Spontaneous
  Country: US (occurrence: US)
  Receive Date: 20150811
  Receipt Date: 20150824
  Transmission Date: 20151125
  Serious: No
  Sender: FDA-Public Use
  Company Number: US-BRISTOL-MYERS SQUIBB COMPANY-BMS-2015-052568

PATIENT
  Sex: Female

DRUGS (2)
  1. KENALOG-40 [Suspect]
     Active Substance: TRIAMCINOLONE ACETONIDE
     Indication: PRODUCT USED FOR UNKNOWN INDICATION
     Route: 065
  2. KENALOG-10 [Suspect]
     Active Substance: TRIAMCINOLONE ACETONIDE
     Indication: SWELLING
     Dosage: 1 UNK, UNK
     Route: 065
     Dates: end: 20150702

REACTIONS (6)
  - Irritability [Recovering/Resolving]
  - Crying [Recovering/Resolving]
  - Anxiety [Recovering/Resolving]
  - Thinking abnormal [Recovering/Resolving]
  - Mood swings [Recovering/Resolving]
  - Inappropriate affect [Recovering/Resolving]
